FAERS Safety Report 18072039 (Version 2)
Quarter: 2020Q3

REPORT INFORMATION
  Report Type: Spontaneous
  Country: US (occurrence: US)
  Receive Date: 20200727
  Receipt Date: 20200805
  Transmission Date: 20201103
  Serious: No
  Sender: FDA-Public Use
  Company Number: US-PFIZER INC-2020211850

PATIENT
  Age: 75 Year
  Sex: Female
  Weight: 64.85 kg

DRUGS (1)
  1. XELJANZ XR [Suspect]
     Active Substance: TOFACITINIB CITRATE
     Indication: RHEUMATOID ARTHRITIS
     Dosage: 11 MG, 1X/DAY
     Route: 048
     Dates: start: 20200422, end: 2020

REACTIONS (3)
  - Lip swelling [Unknown]
  - Hypersensitivity [Unknown]
  - Mouth swelling [Unknown]

NARRATIVE: CASE EVENT DATE: 2020
